FAERS Safety Report 13468567 (Version 1)
Quarter: 2017Q2

REPORT INFORMATION
  Report Type: Spontaneous
  Country: FR (occurrence: FR)
  Receive Date: 20170421
  Receipt Date: 20170421
  Transmission Date: 20170830
  Serious: Yes (Life-Threatening, Hospitalization, Other)
  Sender: FDA-Public Use
  Company Number: FR-ASTRAZENECA-2017SE40747

PATIENT
  Age: 49 Year
  Sex: Male

DRUGS (10)
  1. AZACTAM [Suspect]
     Active Substance: AZTREONAM
     Route: 065
     Dates: start: 20161012, end: 20161017
  2. MIDAZOLAM [Suspect]
     Active Substance: MIDAZOLAM HYDROCHLORIDE
     Route: 065
     Dates: start: 20161011, end: 20161013
  3. PANTOPRAZOLE [Suspect]
     Active Substance: PANTOPRAZOLE
     Indication: GASTRITIS
     Route: 065
     Dates: end: 20161013
  4. CEFTAZIDIME. [Suspect]
     Active Substance: CEFTAZIDIME
     Dosage: NON-AZ PRODUCT
     Route: 065
     Dates: start: 20161010, end: 20161012
  5. PIPERACILLIN [Suspect]
     Active Substance: PIPERACILLIN
     Route: 065
     Dates: start: 20161010, end: 20161011
  6. HALDOL [Suspect]
     Active Substance: HALOPERIDOL
     Route: 065
     Dates: start: 20161007, end: 20161011
  7. CRESTOR [Suspect]
     Active Substance: ROSUVASTATIN CALCIUM
     Indication: DYSLIPIDAEMIA
     Route: 048
     Dates: end: 20161012
  8. AMIKACIN [Suspect]
     Active Substance: AMIKACIN
     Route: 065
     Dates: start: 20161010, end: 20161012
  9. GELOFUSINE [Suspect]
     Active Substance: GELATIN\SODIUM CHLORIDE
     Route: 042
  10. TRANXENE T-TAB [Suspect]
     Active Substance: CLORAZEPATE DIPOTASSIUM
     Route: 065
     Dates: start: 20161008, end: 20161011

REACTIONS (12)
  - Post procedural haemorrhage [Unknown]
  - Myocardial infarction [Unknown]
  - Acute kidney injury [Unknown]
  - Cardiogenic shock [Recovered/Resolved]
  - Ventricular septal defect acquired [Unknown]
  - Post procedural haematoma [Unknown]
  - Drug reaction with eosinophilia and systemic symptoms [Unknown]
  - Renal tubular necrosis [Unknown]
  - Dyspnoea [Unknown]
  - Vasoplegia syndrome [Recovered/Resolved]
  - Chest pain [Unknown]
  - Postoperative respiratory distress [Unknown]

NARRATIVE: CASE EVENT DATE: 20160924
